FAERS Safety Report 11340703 (Version 3)
Quarter: 2016Q4

REPORT INFORMATION
  Report Type: Spontaneous
  Country: US (occurrence: US)
  Receive Date: 20150805
  Receipt Date: 20161216
  Transmission Date: 20170206
  Serious: No
  Sender: FDA-Public Use
  Company Number: US-PFIZER INC-2015256963

PATIENT
  Sex: Female

DRUGS (13)
  1. PHENOBARBITAL. [Suspect]
     Active Substance: PHENOBARBITAL
     Dosage: UNK
  2. INDOMETHACIN. [Suspect]
     Active Substance: INDOMETHACIN
     Dosage: UNK
  3. PROVIGIL [Suspect]
     Active Substance: MODAFINIL
     Dosage: UNK
  4. METHOTREXATE SODIUM. [Suspect]
     Active Substance: METHOTREXATE SODIUM
     Dosage: UNK
  5. PB-HYOSCY-ATROPINE-SCOPOLAMINE [Suspect]
     Active Substance: ATROPINE SULFATE\HYOSCYAMINE SULFATE\PHENOBARBITAL\SCOPOLAMINE HYDROBROMIDE
     Dosage: UNK
  6. LINCOMYCIN HCL [Suspect]
     Active Substance: LINCOMYCIN HYDROCHLORIDE
     Dosage: UNK
  7. DOXYCYCLINE CALCIUM [Suspect]
     Active Substance: DOXYCYCLINE CALCIUM
     Dosage: UNK
  8. GLUCOTROL [Suspect]
     Active Substance: GLIPIZIDE
     Dosage: UNK
  9. BEXTRA [Suspect]
     Active Substance: VALDECOXIB
     Dosage: UNK
  10. CLINDAMYCIN HCL [Suspect]
     Active Substance: CLINDAMYCIN HYDROCHLORIDE
     Dosage: UNK
  11. CEPHALEXIN. [Suspect]
     Active Substance: CEPHALEXIN
     Dosage: UNK
  12. PLAQUENIL [Suspect]
     Active Substance: HYDROXYCHLOROQUINE SULFATE
     Dosage: UNK
  13. PLAVIX [Suspect]
     Active Substance: CLOPIDOGREL BISULFATE
     Dosage: UNK

REACTIONS (1)
  - Drug hypersensitivity [Unknown]
